FAERS Safety Report 9470191 (Version 1)
Quarter: 2013Q3

REPORT INFORMATION
  Report Type: Spontaneous
  Country: US (occurrence: US)
  Receive Date: 20130822
  Receipt Date: 20130822
  Transmission Date: 20140515
  Serious: Yes (Other)
  Sender: FDA-Public Use
  Company Number: US-COVIDIEN/TYCO HEALTHCARE/MALLINCKRODT-T201304123

PATIENT
  Age: 13 Year
  Sex: Male

DRUGS (2)
  1. GABLOFEN [Suspect]
     Indication: MUSCLE SPASTICITY
     Dosage: 307 MG/DAY
     Route: 037
  2. TRILEPTAL [Suspect]
     Indication: CONVULSION
     Dosage: UNK

REACTIONS (3)
  - Convulsion [Recovered/Resolved]
  - Muscle spasticity [Unknown]
  - Pain [Unknown]
